FAERS Safety Report 6866514-X (Version None)
Quarter: 2010Q3

REPORT INFORMATION
  Report Type: 
  Country: None (occurrence: None)
  Receive Date: 20100722
  Receipt Date: 20100719
  Transmission Date: 20110219
  Serious: No
  Sender: FDA-Public Use
  Company Number: US-TEVA-241976USA

PATIENT
  Sex: Female
  Weight: 65.83 kg

DRUGS (3)
  1. ALBUTEROL SULFATE AUTOHALER [Suspect]
     Dosage: ONE TIME USE TWO PUFFS
     Route: 055
     Dates: start: 20100717, end: 20100717
  2. AMOXICILLIN [Concomitant]
  3. AZITHROMYCIN [Concomitant]

REACTIONS (3)
  - LIP OEDEMA [None]
  - OEDEMA MOUTH [None]
  - SWELLING FACE [None]
